FAERS Safety Report 23329074 (Version 5)
Quarter: 2024Q1

REPORT INFORMATION
  Report Type: Report from Study
  Country: GB (occurrence: GB)
  Receive Date: 20231222
  Receipt Date: 20240325
  Transmission Date: 20240410
  Serious: Yes (Hospitalization, Other)
  Sender: FDA-Public Use
  Company Number: GB-BAXTER-2023BAX038766

PATIENT
  Age: 62 Year
  Sex: Female
  Weight: 85.4 kg

DRUGS (6)
  1. DOXORUBICIN HYDROCHLORIDE [Suspect]
     Active Substance: DOXORUBICIN HYDROCHLORIDE
     Indication: Ovarian cancer stage I
     Dosage: 40 MILLIGRAM/SQ METER, DAY 1 OF 28 DAYS CYCLE, C1D1, MOST RECENT DOSE, PRIOR TO THE EVENT ONSET
     Route: 042
     Dates: start: 20231101, end: 20231101
  2. AMLODIPINE [Concomitant]
     Active Substance: AMLODIPINE BESYLATE
     Indication: Hypertension
     Dosage: UNK, START DATE: OCT-2021, ONGOING
     Route: 065
  3. RAMIPRIL [Concomitant]
     Active Substance: RAMIPRIL
     Indication: Hypertension
     Dosage: UNK, START DATE: OCT-2021, ONGOING
     Route: 065
  4. APIXABAN [Concomitant]
     Active Substance: APIXABAN
     Indication: Pulmonary embolism
     Dosage: UNK, START DATE: JAN-2023
     Route: 065
     Dates: end: 20231130
  5. IBUPROFEN [Concomitant]
     Active Substance: IBUPROFEN
     Indication: Restless legs syndrome
     Dosage: UNK
     Route: 065
     Dates: start: 20231113, end: 20231114
  6. ACETAMINOPHEN [Concomitant]
     Active Substance: ACETAMINOPHEN
     Indication: Restless legs syndrome
     Dosage: UNK, ONGOING
     Route: 065
     Dates: start: 20231112

REACTIONS (1)
  - Embolism [Recovering/Resolving]

NARRATIVE: CASE EVENT DATE: 20231130
